FAERS Safety Report 6844342-9 (Version None)
Quarter: 2010Q3

REPORT INFORMATION
  Report Type: 
  Country: None (occurrence: None)
  Receive Date: 20100715
  Receipt Date: 20100709
  Transmission Date: 20110219
  Serious: Yes (Hospitalization)
  Sender: FDA-Public Use
  Company Number: US-GILEAD-2010-0030350

PATIENT
  Sex: Female
  Weight: 94.886 kg

DRUGS (10)
  1. LETAIRIS [Suspect]
     Indication: PULMONARY ARTERIAL HYPERTENSION
     Route: 048
  2. REVATIO [Concomitant]
  3. LASIX [Concomitant]
  4. DILTIAZEM [Concomitant]
  5. MUCINEX [Concomitant]
  6. PREDNISONE [Concomitant]
  7. PREVACID [Concomitant]
  8. XANAX [Concomitant]
  9. K-DUR [Concomitant]
  10. FERROUS SULFATE [Concomitant]

REACTIONS (6)
  - ABDOMINAL DISTENSION [None]
  - ABDOMINAL PAIN [None]
  - NAUSEA [None]
  - OEDEMA PERIPHERAL [None]
  - PNEUMONIA [None]
  - VOMITING [None]
